FAERS Safety Report 9080385 (Version 1)
Quarter: 2013Q1

REPORT INFORMATION
  Report Type: Report from Study
  Country: US (occurrence: US)
  Receive Date: 20130130
  Receipt Date: 20130130
  Transmission Date: 20140127
  Serious: No
  Sender: FDA-Public Use
  Company Number: US-ABBOTT-12P-163-0968503-00

PATIENT
  Age: 40 Year
  Sex: Female

DRUGS (6)
  1. HUMIRA 40 MG/0.8 ML PEN [Suspect]
     Indication: RHEUMATOID ARTHRITIS
     Dates: start: 20120731
  2. RYZOLT [Concomitant]
     Indication: ARTHRITIS
     Route: 048
  3. MOBIC [Concomitant]
     Indication: ARTHRITIS
     Dosage: 15MG DAILY
     Route: 048
  4. SULFASALAZINE [Concomitant]
     Indication: ARTHRITIS
     Route: 048
  5. MICROZIDE [Concomitant]
     Indication: HYPERTENSION
     Dosage: 12.5MG DAILY
     Route: 048
  6. OXYBUTYNIN [Concomitant]
     Indication: HYPERTONIC BLADDER
     Dosage: 5MG DAILY
     Route: 048

REACTIONS (1)
  - Injection site haemorrhage [Recovered/Resolved]
